FAERS Safety Report 8537578-2 (Version None)
Quarter: 2012Q3

REPORT INFORMATION
  Report Type: 
  Country: None (occurrence: None)
  Receive Date: 20120725
  Receipt Date: 20120712
  Transmission Date: 20120928
  Serious: No
  Sender: FDA-Public Use
  Company Number: US-ASTRAZENECA-2012SE48296

PATIENT
  Age: 1 Year
  Sex: Male
  Weight: 12.7 kg

DRUGS (12)
  1. CETIRIZINE HCL [Concomitant]
  2. NYSTATIN [Concomitant]
  3. MOTRIN [Concomitant]
  4. AMMONIUM LACTATE [Concomitant]
  5. BUDESONIDE [Suspect]
     Route: 055
  6. SINGULAIR [Concomitant]
  7. POLYETHYLENE GLYCOL [Concomitant]
  8. NEXIUM [Suspect]
     Route: 048
  9. NEXIUM [Suspect]
     Indication: GASTROOESOPHAGEAL REFLUX DISEASE
     Route: 048
  10. ALBUTEROL [Concomitant]
  11. HYDROCORTISONE [Concomitant]
  12. CYPRO HC [Concomitant]

REACTIONS (3)
  - DIARRHOEA [None]
  - IRRITABILITY [None]
  - ABDOMINAL DISCOMFORT [None]
